FAERS Safety Report 16968846 (Version 1)
Quarter: 2019Q4

REPORT INFORMATION
  Report Type: Spontaneous
  Country: US (occurrence: US)
  Receive Date: 20191029
  Receipt Date: 20191029
  Transmission Date: 20200122
  Serious: Yes (Other)
  Sender: FDA-Public Use
  Company Number: US-PACIRA-201900357

PATIENT
  Age: 60 Year
  Sex: Male

DRUGS (1)
  1. EXPAREL [Suspect]
     Active Substance: BUPIVACAINE
     Indication: HERNIA REPAIR
     Dosage: 266 MG
     Route: 065

REACTIONS (2)
  - Peritonitis [Unknown]
  - Abdominal pain [Unknown]
